FAERS Safety Report 5158368-7 (Version None)
Quarter: 2006Q4

REPORT INFORMATION
  Report Type: 
  Country: None (occurrence: None)
  Receive Date: 20061128
  Receipt Date: 20060420
  Transmission Date: 20070319
  Serious: Yes (Other)
  Sender: FDA-Public Use
  Company Number: M-05-269

PATIENT
  Age: 65 Year
  Sex: Female

DRUGS (6)
  1. LANOXIN [Suspect]
     Indication: HEART RATE IRREGULAR
     Dosage: .25MG PER DAY
     Route: 048
  2. PREVALITE [Suspect]
     Indication: BLOOD CHOLESTEROL INCREASED
     Dosage: 11G PER DAY
     Route: 048
     Dates: start: 20050610, end: 20050808
  3. GLYBURIDE [Concomitant]
  4. LISINOPRIL [Concomitant]
  5. GLUCOPHAGE [Concomitant]
  6. COUMADIN [Concomitant]

REACTIONS (2)
  - ATRIAL FIBRILLATION [None]
  - DRUG INTERACTION INHIBITION [None]
